FAERS Safety Report 6396652-X (Version None)
Quarter: 2009Q4

REPORT INFORMATION
  Report Type: 
  Country: None (occurrence: None)
  Receive Date: 20091012
  Receipt Date: 20090930
  Transmission Date: 20100525
  Serious: Yes (Other)
  Sender: FDA-Public Use
  Company Number: US-ELI_LILLY_AND_COMPANY-US200910000795

PATIENT
  Age: 50 Year
  Sex: Female

DRUGS (5)
  1. ZYPREXA [Suspect]
     Indication: DEPRESSION
     Dosage: 15 MG, UNK
     Dates: start: 20070101, end: 20090301
  2. ZYPREXA [Suspect]
     Dosage: 2.5 MG, UNK
     Dates: start: 20090301, end: 20090101
  3. ZYPREXA [Suspect]
     Dosage: 1.25 MG, UNK
     Dates: start: 20090101
  4. PROZAC [Concomitant]
     Indication: DEPRESSION
     Dosage: 20 MG, UNK
     Dates: start: 20070101
  5. XANAX [Concomitant]
     Dosage: 0.5 MG, 3/D

REACTIONS (5)
  - ABDOMINAL PAIN UPPER [None]
  - CHOLECYSTECTOMY [None]
  - DRUG WITHDRAWAL SYNDROME [None]
  - INTENTIONAL DRUG MISUSE [None]
  - WEIGHT INCREASED [None]
